FAERS Safety Report 5143988-6 (Version None)
Quarter: 2006Q4

REPORT INFORMATION
  Report Type: 
  Country: None (occurrence: None)
  Receive Date: 20061106
  Receipt Date: 20061025
  Transmission Date: 20070319
  Serious: Yes (Hospitalization, Other)
  Sender: FDA-Public Use
  Company Number: US-AVENTIS-200618857US

PATIENT
  Age: 13 Year
  Sex: Female

DRUGS (3)
  1. LANTUS [Suspect]
     Indication: DIABETES MELLITUS
     Dates: start: 20060801
  2. LANTUS [Suspect]
     Dosage: DOSE: 40 U, NEW VIAL
     Dates: start: 20061025
  3. HUMALOG [Concomitant]
     Dosage: DOSE: SLIDING SCALE

REACTIONS (6)
  - BLOOD KETONE BODY [None]
  - DIABETIC KETOACIDOSIS [None]
  - HEADACHE [None]
  - HYPERGLYCAEMIA [None]
  - PHARMACEUTICAL PRODUCT COMPLAINT [None]
  - VOMITING [None]
